FAERS Safety Report 16142938 (Version 2)
Quarter: 2019Q2

REPORT INFORMATION
  Report Type: Spontaneous
  Country: US (occurrence: US)
  Receive Date: 20190401
  Receipt Date: 20190408
  Transmission Date: 20190711
  Serious: Yes (Hospitalization)
  Sender: FDA-Public Use
  Company Number: US-VIFOR (INTERNATIONAL) INC.-VIT-2019-02755

PATIENT
  Age: 72 Year
  Sex: Male

DRUGS (24)
  1. ATROVENT [Concomitant]
     Active Substance: IPRATROPIUM BROMIDE
  2. FUROSEMIDE. [Concomitant]
     Active Substance: FUROSEMIDE
  3. MELATONIN [Concomitant]
     Active Substance: MELATONIN
  4. FERROUS SULFATE. [Concomitant]
     Active Substance: FERROUS SULFATE
  5. FISH OIL [Concomitant]
     Active Substance: FISH OIL
  6. PLAVIX [Concomitant]
     Active Substance: CLOPIDOGREL BISULFATE
  7. METFORMIN HCL [Concomitant]
     Active Substance: METFORMIN HYDROCHLORIDE
  8. NORVASC [Concomitant]
     Active Substance: AMLODIPINE BESYLATE
  9. SOTALOL HCL [Concomitant]
     Active Substance: SOTALOL
  10. VELTASSA [Suspect]
     Active Substance: PATIROMER
     Indication: HYPERKALAEMIA
     Route: 048
     Dates: start: 20170620
  11. ELIQUIS [Concomitant]
     Active Substance: APIXABAN
  12. MAGNESIUM OXIDE. [Concomitant]
     Active Substance: MAGNESIUM OXIDE
  13. ALDACTONE [Concomitant]
     Active Substance: SPIRONOLACTONE
  14. COLCRYS [Concomitant]
     Active Substance: COLCHICINE
  15. CRANBERRY. [Concomitant]
     Active Substance: CRANBERRY
  16. CRESTOR [Concomitant]
     Active Substance: ROSUVASTATIN CALCIUM
  17. NITROGLYCERIN. [Concomitant]
     Active Substance: NITROGLYCERIN
  18. VITAMIN D3 [Concomitant]
     Active Substance: CHOLECALCIFEROL
  19. FLOVENT HFA [Concomitant]
     Active Substance: FLUTICASONE PROPIONATE
  20. IMDUR [Concomitant]
     Active Substance: ISOSORBIDE MONONITRATE
  21. SAW PALMETTO [Concomitant]
     Active Substance: HERBALS\SAW PALMETTO
  22. LISINOPRIL. [Concomitant]
     Active Substance: LISINOPRIL
  23. SYMBICORT [Concomitant]
     Active Substance: BUDESONIDE\FORMOTEROL FUMARATE DIHYDRATE
  24. VITAMIN C [Concomitant]
     Active Substance: ASCORBIC ACID

REACTIONS (2)
  - Dyspnoea [Unknown]
  - Constipation [Not Recovered/Not Resolved]

NARRATIVE: CASE EVENT DATE: 20170620
